FAERS Safety Report 9359756 (Version 9)
Quarter: 2014Q1

REPORT INFORMATION
  Report Type: Report from Study
  Country: CA (occurrence: CA)
  Receive Date: 20130621
  Receipt Date: 20140210
  Transmission Date: 20141002
  Serious: Yes (Other)
  Sender: FDA-Public Use
  Company Number: CA-ROCHE-1155099

PATIENT
  Age: 65 Year
  Sex: Female
  Weight: 63.5 kg

DRUGS (17)
  1. RITUXAN [Suspect]
     Indication: SJOGREN^S SYNDROME
     Dosage: DAY 1 AND 15, LAST DOSE ON 26/JUN/2013
     Route: 042
     Dates: start: 20121026
  2. BENADRYL (CANADA) [Suspect]
     Indication: PRODUCT USED FOR UNKNOWN INDICATION
     Route: 065
  3. METFORMIN [Concomitant]
  4. OXYBUTYNIN [Concomitant]
  5. ELAVIL (CANADA) [Concomitant]
  6. PROCYTOX [Concomitant]
  7. ASA [Concomitant]
  8. FOSAVANCE [Concomitant]
  9. SENOKOT [Concomitant]
  10. LECITHIN [Concomitant]
  11. ARTHROTEC FORTE [Concomitant]
  12. BETAMETHASONE SODIUM PHOSPHATE/GENTAMICIN SULFATE [Concomitant]
  13. IBUPROFEN [Concomitant]
     Indication: PAIN
     Route: 065
  14. PREDNISONE [Concomitant]
  15. BENADRYL (CANADA) [Concomitant]
     Route: 048
     Dates: start: 20121109, end: 20121109
  16. TYLENOL [Concomitant]
     Route: 048
     Dates: start: 20121109
  17. SOLU-MEDROL [Concomitant]
     Route: 042
     Dates: start: 20121109

REACTIONS (20)
  - Hypotension [Recovering/Resolving]
  - Neoplasm malignant [Unknown]
  - Renal disorder [Unknown]
  - Pain [Not Recovered/Not Resolved]
  - Pneumonia [Unknown]
  - Ocular hyperaemia [Not Recovered/Not Resolved]
  - Infusion related reaction [Recovered/Resolved]
  - Somnolence [Recovered/Resolved]
  - Ear discomfort [Recovered/Resolved]
  - Pharyngeal hypoaesthesia [Recovered/Resolved]
  - Cough [Not Recovered/Not Resolved]
  - Emotional distress [Recovered/Resolved]
  - Dyspnoea [Unknown]
  - Malaise [Unknown]
  - Bronchitis [Unknown]
  - Fungal infection [Unknown]
  - Off label use [Unknown]
  - Oxygen saturation decreased [Recovering/Resolving]
  - Somnolence [Recovering/Resolving]
  - Chronic obstructive pulmonary disease [Unknown]
